FAERS Safety Report 8518634 (Version 5)
Quarter: 2014Q2

REPORT INFORMATION
  Report Type: Spontaneous
  Country: US (occurrence: US)
  Receive Date: 20120417
  Receipt Date: 20140630
  Transmission Date: 20141212
  Serious: No
  Sender: FDA-Public Use
  Company Number: US-ASTRAZENECA-2011SE51688

PATIENT
  Age: 46 Year
  Sex: Female
  Weight: 62.6 kg

DRUGS (11)
  1. NEXIUM [Suspect]
     Indication: GASTROOESOPHAGEAL REFLUX DISEASE
     Route: 048
     Dates: start: 2001
  2. NEXIUM [Suspect]
     Indication: GASTROOESOPHAGEAL REFLUX DISEASE
     Route: 048
     Dates: start: 2008, end: 20130828
  3. NEXIUM [Suspect]
     Indication: GASTROOESOPHAGEAL REFLUX DISEASE
     Route: 048
     Dates: start: 2014
  4. PRILOSEC [Suspect]
     Indication: EROSIVE OESOPHAGITIS
     Route: 048
  5. CRESTOR [Suspect]
     Indication: BLOOD CHOLESTEROL ABNORMAL
     Dosage: DAILY
     Route: 048
  6. FIVYTORIN [Concomitant]
     Indication: BLOOD CHOLESTEROL ABNORMAL
     Dates: start: 2009
  7. WELLBUTRIN [Concomitant]
     Indication: DEPRESSION
     Dates: start: 2006
  8. REGLAN [Concomitant]
     Indication: NAUSEA
     Dosage: 10MG TWICE A DAY AS NEEDED
  9. VYTORIN [Concomitant]
     Indication: BLOOD CHOLESTEROL ABNORMAL
  10. TUMS [Concomitant]
     Indication: GASTROOESOPHAGEAL REFLUX DISEASE
  11. PEPTO BISMOL [Concomitant]
     Indication: NAUSEA

REACTIONS (9)
  - Hiatus hernia [Unknown]
  - Gastrooesophageal reflux disease [Not Recovered/Not Resolved]
  - Oesophagitis [Unknown]
  - Malaise [Unknown]
  - Nausea [Not Recovered/Not Resolved]
  - Dysgeusia [Unknown]
  - Oesophageal discomfort [Unknown]
  - Off label use [Unknown]
  - Drug dose omission [Not Recovered/Not Resolved]
